FAERS Safety Report 7374679-9 (Version None)
Quarter: 2011Q1

REPORT INFORMATION
  Report Type: 
  Country: None (occurrence: None)
  Receive Date: 20110325
  Receipt Date: 20100719
  Transmission Date: 20110831
  Serious: No
  Sender: FDA-Public Use
  Company Number: US-MYLANLABS-2010S1013099

PATIENT
  Age: 40 Year
  Sex: Male
  Weight: 104.33 kg

DRUGS (4)
  1. FENTANYL-100 [Suspect]
     Dosage: CHANGES PATCHES Q3D
     Route: 062
     Dates: start: 20100713
  2. FENTANYL-100 [Suspect]
     Dosage: CHANGES PATCHES Q3D
     Route: 062
     Dates: start: 20100713, end: 20100713
  3. HYDROCODONE BITARTRATE [Concomitant]
     Indication: NEUROPATHY PERIPHERAL
  4. FENTANYL-100 [Suspect]
     Indication: NEUROPATHY PERIPHERAL
     Dosage: CHANGES PATCHES Q3D
     Route: 062
     Dates: end: 20100713

REACTIONS (3)
  - SKIN TIGHTNESS [None]
  - PARAESTHESIA [None]
  - BURNING SENSATION [None]
